FAERS Safety Report 20237354 (Version 1)
Quarter: 2021Q4

REPORT INFORMATION
  Report Type: Report from Study
  Country: CN (occurrence: CN)
  Receive Date: 20211228
  Receipt Date: 20211228
  Transmission Date: 20220303
  Serious: Yes (Death)
  Sender: FDA-Public Use
  Company Number: CN-PFIZER INC-202101840956

PATIENT

DRUGS (11)
  1. IRINOTECAN HYDROCHLORIDE [Suspect]
     Active Substance: IRINOTECAN HYDROCHLORIDE
     Indication: Neuroblastoma
     Dosage: D1-3
  2. TOPOTECAN [Suspect]
     Active Substance: TOPOTECAN HYDROCHLORIDE
     Indication: Neuroblastoma
     Dosage: D1-5
     Route: 042
  3. CYCLOPHOSPHAMIDE [Suspect]
     Active Substance: CYCLOPHOSPHAMIDE
     Indication: Neuroblastoma
     Dosage: ({12 KG: 13.3 MG/KG), D1-5
     Route: 042
  4. CYCLOPHOSPHAMIDE [Suspect]
     Active Substance: CYCLOPHOSPHAMIDE
     Dosage: ({12 KG: 60 MG/KG), D1-2
     Route: 042
  5. CISPLATIN [Suspect]
     Active Substance: CISPLATIN
     Indication: Neuroblastoma
     Dosage: ({12 KG: 1.67 MG/KG), D1-4
     Route: 042
  6. CARBOPLATIN [Suspect]
     Active Substance: CARBOPLATIN
     Indication: Neuroblastoma
     Dosage: ({12 KG: 18 MG/KG), D1
  7. ETOPOSIDE [Suspect]
     Active Substance: ETOPOSIDE
     Indication: Neuroblastoma
     Dosage: ({12 KG: 6.67 MG/KG), D1-3
     Route: 042
  8. MESNA [Suspect]
     Active Substance: MESNA
     Indication: Neuroblastoma
     Dosage: (0, 4, AND 8 H AFTER CTX INJECTION), ROUTE: PUSH, D1-2
  9. DOXORUBICIN [Suspect]
     Active Substance: DOXORUBICIN
     Indication: Neuroblastoma
     Dosage: ({12 KG: 0.83 MG/KG), D1-3
     Route: 042
  10. DOXORUBICIN HYDROCHLORIDE [Suspect]
     Active Substance: DOXORUBICIN HYDROCHLORIDE
     Indication: Neuroblastoma
     Dosage: D1-3
  11. VINCRISTINE [Suspect]
     Active Substance: VINCRISTINE
     Indication: Neuroblastoma
     Dosage: 0.017 MG/KG ({12 MONTHS), 0.67 MG/M2 ({12 MONTHS AND 12 KG), 0.022 MG/KG (}12 MONTHS, BELOW 12 KG) P

REACTIONS (1)
  - Death [Fatal]
